FAERS Safety Report 17028284 (Version 2)
Quarter: 2020Q2

REPORT INFORMATION
  Report Type: Spontaneous
  Country: CA (occurrence: CA)
  Receive Date: 20191113
  Receipt Date: 20200406
  Transmission Date: 20200713
  Serious: Yes (Hospitalization)
  Sender: FDA-Public Use
  Company Number: CA-ACTELION-A-US2019-189508

PATIENT
  Age: 75 Year
  Sex: Male

DRUGS (9)
  1. UPTRAVI [Suspect]
     Active Substance: SELEXIPAG
     Indication: PULMONARY ARTERIAL HYPERTENSION
     Dosage: 1600 MCG, BID
     Route: 048
     Dates: start: 20180202
  2. OPSUMIT [Suspect]
     Active Substance: MACITENTAN
     Indication: PULMONARY ARTERIAL HYPERTENSION
     Dosage: 10 MG, QD
     Route: 048
  3. PANTOLOC [Concomitant]
     Active Substance: PANTOPRAZOLE SODIUM
  4. CARIPUL [Suspect]
     Active Substance: EPOPROSTENOL
     Indication: PULMONARY ARTERIAL HYPERTENSION
     Dosage: 3 MG, QD
     Route: 042
     Dates: start: 20190909
  5. UPTRAVI [Suspect]
     Active Substance: SELEXIPAG
     Dosage: 800 MCG, BID
     Route: 048
  6. ADEMPAS [Concomitant]
     Active Substance: RIOCIGUAT
  7. COUMADIN [Concomitant]
     Active Substance: WARFARIN SODIUM
  8. RAMIPRIL. [Concomitant]
     Active Substance: RAMIPRIL
  9. UPTRAVI [Suspect]
     Active Substance: SELEXIPAG
     Dosage: 1000 MCG, BID
     Route: 048

REACTIONS (10)
  - Nausea [Not Recovered/Not Resolved]
  - Abdominal discomfort [Unknown]
  - Incorrect dose administered [Unknown]
  - Localised oedema [Not Recovered/Not Resolved]
  - Localised infection [Not Recovered/Not Resolved]
  - Dizziness [Not Recovered/Not Resolved]
  - Condition aggravated [Unknown]
  - Malaise [Not Recovered/Not Resolved]
  - Diarrhoea [Not Recovered/Not Resolved]
  - Arthropod bite [Not Recovered/Not Resolved]

NARRATIVE: CASE EVENT DATE: 20190403
